FAERS Safety Report 8378664-X (Version None)
Quarter: 2012Q2

REPORT INFORMATION
  Report Type: 
  Country: None (occurrence: None)
  Receive Date: 20120522
  Receipt Date: 20120518
  Transmission Date: 20120825
  Serious: Yes (Other)
  Sender: FDA-Public Use
  Company Number: PHHY2012US042961

PATIENT
  Age: 18 Year
  Sex: Female

DRUGS (2)
  1. HEPARIN [Suspect]
     Indication: HEPATIC VEIN THROMBOSIS
  2. TISSUE PLASMINOGEN ACTIVATOR, RECOMBINATIVE [Concomitant]

REACTIONS (4)
  - HEPARIN-INDUCED THROMBOCYTOPENIA [None]
  - PLEURAL HAEMORRHAGE [None]
  - SPLENIC INFARCTION [None]
  - PLEURAL EFFUSION [None]
